FAERS Safety Report 8001855-4 (Version None)
Quarter: 2011Q4

REPORT INFORMATION
  Report Type: 
  Country: None (occurrence: None)
  Receive Date: 20111222
  Receipt Date: 20111219
  Transmission Date: 20120403
  Serious: Yes (Disabling)
  Sender: FDA-Public Use
  Company Number: US-TEVA-311528USA

PATIENT
  Sex: Female
  Weight: 112.59 kg

DRUGS (21)
  1. CARBAMAZEPINE [Suspect]
     Dosage: 200 MILLIGRAM;
     Dates: start: 20110624, end: 20110827
  2. LEVOTHYROXINE SODIUM [Interacting]
     Indication: BASEDOW'S DISEASE
     Dosage: 225 MICROGRAM;
  3. WARFARIN SODIUM [Interacting]
     Indication: PROPHYLAXIS
     Dosage: 1-7 PILLS EVENING
     Dates: start: 20110601
  4. VICODIN [Interacting]
     Dosage: 10/325 MG
  5. DOCUSATE SODIUM [Concomitant]
  6. ALLIUM SATIVUM [Concomitant]
     Dosage: 1000 MILLIGRAM;
  7. GLUCOSAMINE W/CHONDROITIN SULFATE [Concomitant]
     Dosage: 600/560
  8. ESCITALOPRAM OXALATE [Interacting]
     Indication: FIBROMYALGIA
     Dosage: 20 MILLIGRAM;
  9. FUROSEMIDE [Interacting]
     Indication: FLUID RETENTION
     Dosage: 80 MILLIGRAM;
  10. BUPROPION HYDROCHLORIDE [Interacting]
     Indication: DEPRESSION
     Dosage: 300 UNKNOWN;
  11. TRAZODONE HCL [Interacting]
     Indication: FIBROMYALGIA
     Dosage: 50 MILLIGRAM;
     Dates: start: 20110501
  12. POTASSIUM CHLORIDE [Interacting]
     Indication: BLOOD POTASSIUM
     Dosage: 20 MILLIEQUIVALENTS;
  13. CALCIUM CITRATE [Concomitant]
     Dosage: 1000 UNKNOWN;
  14. ERGOCALCIFEROL [Concomitant]
     Dosage: 2000 UNKNOWN;
  15. OMEPRAZOLE [Interacting]
     Dosage: 1:00 AM
  16. TOVIAZ [Interacting]
     Indication: STRESS URINARY INCONTINENCE
     Dosage: 8 MILLIGRAM;
  17. CYANOCOBALAMIN [Concomitant]
  18. FISH OIL [Concomitant]
     Dosage: 1200 UNKNOWN;
  19. TOCOPHEROL CONCENTRATE CAP [Concomitant]
  20. CELECOXIB [Interacting]
     Indication: ARTHRITIS
     Dosage: 200 MILLIGRAM;
  21. ASCORBIC ACID [Concomitant]
     Dosage: 1000 MILLIGRAM;

REACTIONS (11)
  - OEDEMA PERIPHERAL [None]
  - DEPRESSION [None]
  - DRUG INTERACTION [None]
  - FLAT AFFECT [None]
  - SOMNOLENCE [None]
  - APATHY [None]
  - CONFUSIONAL STATE [None]
  - PAIN [None]
  - ACTIVITIES OF DAILY LIVING IMPAIRED [None]
  - WRONG DRUG ADMINISTERED [None]
  - MEMORY IMPAIRMENT [None]
